FAERS Safety Report 4322069-5 (Version None)
Quarter: 2004Q1

REPORT INFORMATION
  Report Type: 
  Country: None (occurrence: None)
  Receive Date: 20040323
  Receipt Date: 20040312
  Transmission Date: 20041129
  Serious: Yes (Life-Threatening, Other)
  Sender: FDA-Public Use
  Company Number: FR-BRISTOL-MYERS SQUIBB COMPANY-12537189

PATIENT
  Age: 74 Year
  Sex: Female

DRUGS (5)
  1. CYCLOPHOSPHAMIDE [Suspect]
     Indication: ARTERITIS
     Dosage: PREV DOSING: IV, 900 MG/MONTH 07DEC99-19JUL00
     Route: 048
     Dates: start: 20000821, end: 20010216
  2. IMUREL [Interacting]
     Route: 048
     Dates: start: 20010217, end: 20010804
  3. METHOTREXATE [Concomitant]
     Route: 048
     Dates: end: 20021004
  4. CORTANCYL [Concomitant]
     Route: 048
  5. REMICADE [Concomitant]
     Route: 042
     Dates: start: 20010808, end: 20020513

REACTIONS (4)
  - COLON CANCER [None]
  - DRUG INTERACTION [None]
  - METASTASES TO LIVER [None]
  - TREATMENT RELATED SECONDARY MALIGNANCY [None]
